FAERS Safety Report 7045863-9 (Version None)
Quarter: 2010Q4

REPORT INFORMATION
  Report Type: 
  Country: None (occurrence: None)
  Receive Date: 20101014
  Receipt Date: 20101001
  Transmission Date: 20110411
  Serious: Yes (Hospitalization)
  Sender: FDA-Public Use
  Company Number: US-ELI_LILLY_AND_COMPANY-US201010001242

PATIENT
  Sex: Female

DRUGS (1)
  1. PROZAC [Suspect]
     Route: 064

REACTIONS (4)
  - CONGENITAL AORTIC STENOSIS [None]
  - DRUG EXPOSURE DURING PREGNANCY [None]
  - MITRAL VALVE DISEASE [None]
  - VENTRICULAR SEPTAL DEFECT [None]
